FAERS Safety Report 12179374 (Version 1)
Quarter: 2016Q1

REPORT INFORMATION
  Report Type: Spontaneous
  Country: JP (occurrence: JP)
  Receive Date: 20160315
  Receipt Date: 20160315
  Transmission Date: 20160526
  Serious: Yes (Other)
  Sender: FDA-Public Use
  Company Number: JP-BRISTOL-MYERS SQUIBB COMPANY-BMS-2016-016191

PATIENT
  Age: 72 Year
  Sex: Female

DRUGS (3)
  1. LULLAN [Concomitant]
     Active Substance: PEROSPIRONE HYDROCHLORIDE
     Indication: PRODUCT USED FOR UNKNOWN INDICATION
     Dosage: UNK
     Route: 048
     Dates: start: 201304, end: 201304
  2. METGLUCO [Suspect]
     Active Substance: METFORMIN HYDROCHLORIDE
     Indication: PRODUCT USED FOR UNKNOWN INDICATION
     Dosage: UNK
     Route: 048
     Dates: start: 201304
  3. LULLAN [Concomitant]
     Active Substance: PEROSPIRONE HYDROCHLORIDE
     Dosage: UNK
     Route: 048
     Dates: start: 201306, end: 201306

REACTIONS (3)
  - Sedation [Unknown]
  - Hypoglycaemia [Unknown]
  - Parkinsonism [Unknown]
